FAERS Safety Report 7825930-X (Version None)
Quarter: 2011Q4

REPORT INFORMATION
  Report Type: 
  Country: None (occurrence: None)
  Receive Date: 20111019
  Receipt Date: 20111013
  Transmission Date: 20120403
  Serious: Yes (Other)
  Sender: FDA-Public Use
  Company Number: BR-ROCHE-750265

PATIENT
  Sex: Female
  Weight: 69 kg

DRUGS (3)
  1. GRACIAL [Concomitant]
     Indication: CONTRACEPTION
  2. ISOTRETINOIN [Suspect]
     Indication: ACNE CYSTIC
     Route: 048
     Dates: start: 20101212, end: 20101219
  3. ISOTRETINOIN [Suspect]

REACTIONS (3)
  - ABORTION SPONTANEOUS [None]
  - BLOOD CHOLESTEROL INCREASED [None]
  - MATERNAL EXPOSURE DURING PREGNANCY [None]
